FAERS Safety Report 4854714-X (Version None)
Quarter: 2005Q4

REPORT INFORMATION
  Report Type: 
  Country: None (occurrence: None)
  Receive Date: 20051215
  Receipt Date: 20040105
  Transmission Date: 20060501
  Serious: Yes (Other)
  Sender: FDA-Public Use
  Company Number: US-GLAXOSMITHKLINE-A0491325A

PATIENT
  Age: 71 Year
  Sex: Male

DRUGS (3)
  1. ADVAIR DISKUS 250/50 [Suspect]
     Indication: CHRONIC OBSTRUCTIVE PULMONARY DISEASE
     Dosage: 1PUFF TWICE PER DAY
     Route: 055
     Dates: start: 20030801
  2. ASPIRIN [Concomitant]
  3. TYLENOL [Concomitant]

REACTIONS (13)
  - BRONCHITIS [None]
  - CARDIAC VALVE DISEASE [None]
  - COUGH [None]
  - DYSPHONIA [None]
  - HEADACHE [None]
  - HYPOAESTHESIA [None]
  - PAIN [None]
  - PHARYNGOLARYNGEAL PAIN [None]
  - PHARYNX DISCOMFORT [None]
  - PROSTATIC SPECIFIC ANTIGEN INCREASED [None]
  - PYREXIA [None]
  - RHINORRHOEA [None]
  - SNEEZING [None]
